FAERS Safety Report 24217982 (Version 2)
Quarter: 2024Q3

REPORT INFORMATION
  Report Type: Spontaneous
  Country: FI (occurrence: FI)
  Receive Date: 20240816
  Receipt Date: 20240822
  Transmission Date: 20241017
  Serious: Yes (Other)
  Sender: MERCK
  Company Number: FI-009507513-2408FIN003460

PATIENT
  Age: 80 Year
  Sex: Female

DRUGS (3)
  1. JANUMET [Suspect]
     Active Substance: METFORMIN HYDROCHLORIDE\SITAGLIPTIN PHOSPHATE
     Indication: Diabetes mellitus
     Dosage: STRENGTH: 50/1000 MG, 1 TABLET IN THE MORNING AT 8 AM AND 1 TABLET IN THE EVENING AT 9 PM
     Route: 048
  2. METFORMIN HYDROCHLORIDE [Suspect]
     Active Substance: METFORMIN HYDROCHLORIDE
     Indication: Type 2 diabetes mellitus
     Dosage: 2 TABLETS A DAY AT 3 PM
     Dates: start: 2003
  3. JARDIANCE [Concomitant]
     Active Substance: EMPAGLIFLOZIN
     Indication: Diabetes mellitus
     Dosage: UNK

REACTIONS (11)
  - Rectal cancer [Recovered/Resolved with Sequelae]
  - Serum ferritin decreased [Unknown]
  - Product residue present [Unknown]
  - Blood glucose increased [Recovering/Resolving]
  - Mean cell volume abnormal [Unknown]
  - Transferrin abnormal [Unknown]
  - Blood iron abnormal [Unknown]
  - Gastritis [Unknown]
  - Gastrointestinal injury [Unknown]
  - Surgical failure [Unknown]
  - Gastrointestinal stoma complication [Unknown]

NARRATIVE: CASE EVENT DATE: 20230101
